FAERS Safety Report 15942957 (Version 1)
Quarter: 2019Q1

REPORT INFORMATION
  Report Type: Spontaneous
  Country: DE (occurrence: DE)
  Receive Date: 20190210
  Receipt Date: 20190210
  Transmission Date: 20190417
  Serious: Yes (Hospitalization)
  Sender: FDA-Public Use
  Company Number: DE-DRREDDYS-GER/GER/19/0107505

PATIENT
  Age: 33 Year
  Sex: Male
  Weight: 107 kg

DRUGS (3)
  1. VOLTAREN RESINAT [Suspect]
     Active Substance: DICLOFENAC
     Indication: ARTHRALGIA
     Dosage: 1 DF, BID
     Route: 048
     Dates: start: 20000208, end: 20000218
  2. ALLOPURINOL. [Suspect]
     Active Substance: ALLOPURINOL
     Indication: HYPERURICAEMIA
     Dosage: 1 DF, QD
     Route: 048
     Dates: start: 20000208, end: 20000218
  3. EMSER PASTILLEN [Suspect]
     Active Substance: ELECTROLYTES NOS
     Indication: OROPHARYNGEAL PAIN
     Dosage: 1 DF, BID
     Route: 048
     Dates: start: 20000201, end: 20000208

REACTIONS (6)
  - Erythema multiforme [Recovered/Resolved]
  - Blister [Recovered/Resolved]
  - Stevens-Johnson syndrome [Recovered/Resolved]
  - Mucosal erosion [Recovered/Resolved]
  - Pruritus [Recovered/Resolved]
  - Ocular hyperaemia [Recovered/Resolved]

NARRATIVE: CASE EVENT DATE: 20000218
